FAERS Safety Report 16127927 (Version 6)
Quarter: 2020Q1

REPORT INFORMATION
  Report Type: Report from Study
  Country: US (occurrence: US)
  Receive Date: 20190328
  Receipt Date: 20200207
  Transmission Date: 20200409
  Serious: Yes (Other)
  Sender: FDA-Public Use
  Company Number: PHEH2019US013390

PATIENT
  Age: 19 Year
  Sex: Female
  Weight: 60.3 kg

DRUGS (3)
  1. CYCLOPHOSPHAMIDE. [Concomitant]
     Active Substance: CYCLOPHOSPHAMIDE
     Indication: CHEMOTHERAPY
     Route: 065
  2. KYMRIAH [Suspect]
     Active Substance: TISAGENLECLEUCEL
     Indication: B-CELL TYPE ACUTE LEUKAEMIA
     Dosage: 0.9E8 CAR-POSITIVE VIABLE T - CELLS (ONCE/SINGLE)
     Route: 041
     Dates: start: 20190320
  3. FLUDARABINE [Concomitant]
     Active Substance: FLUDARABINE PHOSPHATE
     Indication: CHEMOTHERAPY
     Route: 065

REACTIONS (8)
  - Hypotension [Unknown]
  - Second primary malignancy [Unknown]
  - Product administration error [Unknown]
  - Cytopenia [Unknown]
  - Pyrexia [Unknown]
  - Incorrect dose administered [Unknown]
  - Myelodysplastic syndrome [Unknown]
  - Cytokine release syndrome [Recovered/Resolved]

NARRATIVE: CASE EVENT DATE: 20190320
